FAERS Safety Report 10418444 (Version 1)
Quarter: 2014Q3

REPORT INFORMATION
  Report Type: Spontaneous
  Country: US (occurrence: US)
  Receive Date: 20140829
  Receipt Date: 20140829
  Transmission Date: 20150326
  Serious: No
  Sender: FDA-Public Use
  Company Number: US-VIIV HEALTHCARE LIMITED-A1039731A

PATIENT
  Age: 45 Year
  Sex: Male

DRUGS (1)
  1. KIVEXA [Suspect]
     Active Substance: ABACAVIR SULFATE\LAMIVUDINE
     Indication: PRODUCT USED FOR UNKNOWN INDICATION
     Dosage: 1TAB PER DAY
     Route: 065
     Dates: start: 20130625

REACTIONS (10)
  - Oropharyngeal discomfort [Unknown]
  - Chest pain [Unknown]
  - Malaise [Unknown]
  - Fatigue [Unknown]
  - Palpitations [Unknown]
  - Drug hypersensitivity [Unknown]
  - Muscle disorder [Unknown]
  - Peripheral swelling [Unknown]
  - Heart rate increased [Unknown]
  - Acne [Recovered/Resolved]

NARRATIVE: CASE EVENT DATE: 20130627
